FAERS Safety Report 5206339-4 (Version None)
Quarter: 2007Q1

REPORT INFORMATION
  Report Type: 
  Country: None (occurrence: None)
  Receive Date: 20070111
  Receipt Date: 20070102
  Transmission Date: 20070707
  Serious: Yes (Other)
  Sender: FDA-Public Use
  Company Number: US-PFIZER INC-2007000679

PATIENT
  Sex: Female

DRUGS (4)
  1. XANAX [Suspect]
     Indication: ANXIETY
     Dosage: TEXT:UNKNOWN
     Route: 048
  2. LITHIUM CARBONATE [Suspect]
     Indication: BIPOLAR DISORDER
     Route: 048
     Dates: start: 20060601
  3. RISPERDAL [Suspect]
     Indication: BIPOLAR DISORDER
     Route: 048
  4. EFFEXOR [Suspect]
     Indication: BIPOLAR DISORDER
     Route: 048

REACTIONS (3)
  - LOSS OF CONSCIOUSNESS [None]
  - MUSCLE TWITCHING [None]
  - WEIGHT INCREASED [None]
